FAERS Safety Report 9459596 (Version 1)
Quarter: 2013Q3

REPORT INFORMATION
  Report Type: Spontaneous
  Country: GB (occurrence: GB)
  Receive Date: 20130815
  Receipt Date: 20130815
  Transmission Date: 20140515
  Serious: Yes (Hospitalization, Other)
  Sender: FDA-Public Use
  Company Number: GB-AMGEN-GBRSP2013057113

PATIENT
  Age: 35 Year
  Sex: Male
  Weight: 78 kg

DRUGS (5)
  1. ENBREL [Suspect]
     Indication: ANKYLOSING SPONDYLITIS
     Dosage: 50 MG, QWK
     Route: 065
     Dates: start: 20120423, end: 20130701
  2. METHOTREXATE SODIUM [Suspect]
     Indication: ANKYLOSING SPONDYLITIS
     Dosage: 15 MG, WEEKLY
     Route: 048
     Dates: start: 20130401, end: 20130701
  3. BUPRENORPHINE [Concomitant]
     Dosage: UNK
  4. DIAZEPAM [Concomitant]
     Dosage: UNK
  5. SERTRALINE [Concomitant]
     Dosage: UNK

REACTIONS (2)
  - Respiratory failure [Recovering/Resolving]
  - Interstitial lung disease [Recovering/Resolving]
